FAERS Safety Report 6058562-7 (Version None)
Quarter: 2009Q1

REPORT INFORMATION
  Report Type: 
  Country: None (occurrence: None)
  Receive Date: 20090130
  Receipt Date: 20081217
  Transmission Date: 20090719
  Serious: No
  Sender: FDA-Public Use
  Company Number: CA-BAYER-200910728NA

PATIENT
  Age: 38 Year
  Sex: Female

DRUGS (1)
  1. MIRENA [Suspect]
     Indication: VAGINAL HAEMORRHAGE
     Route: 015
     Dates: start: 20070605

REACTIONS (2)
  - FATIGUE [None]
  - MOOD SWINGS [None]
